FAERS Safety Report 7183913-X (Version None)
Quarter: 2010Q4

REPORT INFORMATION
  Report Type: 
  Country: None (occurrence: None)
  Receive Date: 20101222
  Receipt Date: 20101213
  Transmission Date: 20110411
  Serious: Yes (Death, Other)
  Sender: FDA-Public Use
  Company Number: JP-ROCHE-743389

PATIENT
  Age: 83 Year
  Sex: Male

DRUGS (2)
  1. CEFTRIAXONE (NON-ROCHE/NON-COMPARATOR) [Suspect]
     Indication: PNEUMONIA ASPIRATION
     Route: 042
  2. CLINDAMYCIN [Concomitant]
     Dosage: DOSAGE IS UNCERTAIN.
     Route: 042

REACTIONS (2)
  - MEGACOLON [None]
  - PSEUDOMEMBRANOUS COLITIS [None]
